FAERS Safety Report 11157716 (Version 7)
Quarter: 2015Q4

REPORT INFORMATION
  Report Type: Spontaneous
  Country: US (occurrence: None)
  Receive Date: 20150601
  Receipt Date: 20151012
  Transmission Date: 20160304
  Serious: Yes (Other)
  Sender: FDA-Public Use
  Company Number: ADR-2015-00757

PATIENT
  Age: 48 Year
  Sex: Female

DRUGS (2)
  1. LIORESAL [Suspect]
     Active Substance: BACLOFEN
     Indication: MUSCLE SPASTICITY
     Dosage: 617 MCG/DAY (SEE B5)
  2. LIORESAL [Suspect]
     Active Substance: BACLOFEN
     Dosage: 651 MCG/DAY

REACTIONS (9)
  - Decubitus ulcer [None]
  - Weight decreased [None]
  - Muscle spasticity [None]
  - No therapeutic response [None]
  - Respiratory arrest [None]
  - Somnolence [None]
  - Fall [None]
  - Wound [None]
  - Drug hypersensitivity [None]
